FAERS Safety Report 12711001 (Version 1)
Quarter: 2016Q3

REPORT INFORMATION
  Report Type: Spontaneous
  Country: DK (occurrence: DK)
  Receive Date: 20160902
  Receipt Date: 20160902
  Transmission Date: 20161109
  Serious: Yes (Hospitalization)
  Sender: FDA-Public Use
  Company Number: DK-FRI-1000087230

PATIENT
  Sex: Male

DRUGS (12)
  1. SEROQUEL XR [Suspect]
     Active Substance: QUETIAPINE FUMARATE
     Indication: SCHIZOPHRENIA
     Route: 048
     Dates: start: 20120822, end: 201208
  2. TRUXAL [Suspect]
     Active Substance: CHLORPROTHIXENE
     Indication: SCHIZOPHRENIA
     Route: 048
     Dates: start: 20120831
  3. SOLIAN [Suspect]
     Active Substance: AMISULPRIDE
     Indication: SCHIZOPHRENIA
     Route: 048
     Dates: start: 20121121
  4. ESCITALOPRAM [Suspect]
     Active Substance: ESCITALOPRAM OXALATE
     Indication: DEPRESSION
     Route: 065
     Dates: start: 20110926, end: 20120120
  5. IMOCLONE [Suspect]
     Active Substance: ZOPICLONE
     Route: 048
     Dates: start: 20120611
  6. OXAPAX [Suspect]
     Active Substance: OXAZEPAM
     Indication: SEDATION
     Route: 048
     Dates: start: 20120629
  7. IMOCLONE [Suspect]
     Active Substance: ZOPICLONE
     Indication: INSOMNIA
     Route: 065
     Dates: start: 20110926, end: 20120120
  8. ZELDOX [Suspect]
     Active Substance: ZIPRASIDONE
     Indication: SCHIZOPHRENIA
     Dosage: DOSE: 80 MG INCREASING TO 160 MG
     Route: 048
     Dates: start: 20120925
  9. ABILIFY [Suspect]
     Active Substance: ARIPIPRAZOLE
     Indication: SCHIZOPHRENIA
     Route: 048
     Dates: start: 20120822, end: 201208
  10. RISPERIDON ^KRKA^ [Suspect]
     Active Substance: RISPERIDONE
     Indication: SCHIZOPHRENIA
     Route: 048
     Dates: start: 20150115
  11. ESCITALOPRAM [Suspect]
     Active Substance: ESCITALOPRAM OXALATE
     Route: 048
     Dates: start: 20120611, end: 201208
  12. SEROQUEL [Suspect]
     Active Substance: QUETIAPINE FUMARATE
     Indication: SCHIZOPHRENIA
     Route: 048
     Dates: start: 20120625, end: 20120822

REACTIONS (8)
  - Social avoidant behaviour [Unknown]
  - Suicidal ideation [Unknown]
  - Suicide attempt [Unknown]
  - Weight increased [Unknown]
  - Restlessness [Unknown]
  - Sedation [Unknown]
  - Depressed mood [Unknown]
  - Intentional overdose [Unknown]
